FAERS Safety Report 9161521 (Version 1)
Quarter: 2013Q1

REPORT INFORMATION
  Report Type: Report from Study
  Country: VE (occurrence: VE)
  Receive Date: 20130313
  Receipt Date: 20130313
  Transmission Date: 20140127
  Serious: Yes (Other)
  Sender: FDA-Public Use
  Company Number: VE-ABBOTT-13P-178-1061223-00

PATIENT
  Sex: Female
  Weight: 90 kg

DRUGS (2)
  1. HUMIRA [Suspect]
     Indication: RHEUMATOID ARTHRITIS
     Route: 058
     Dates: start: 20110218, end: 20130113
  2. AZAPRIN [Concomitant]
     Indication: RHEUMATOID ARTHRITIS
     Dosage: ROUTE: VO
     Route: 048

REACTIONS (6)
  - Tuberculin test positive [Not Recovered/Not Resolved]
  - Bronchitis [Recovered/Resolved with Sequelae]
  - Bronchitis [Unknown]
  - Bronchitis [Unknown]
  - Bronchitis [Unknown]
  - Fatigue [Unknown]
